FAERS Safety Report 5492799-0 (Version None)
Quarter: 2007Q4

REPORT INFORMATION
  Report Type: 
  Country: None (occurrence: None)
  Receive Date: 20071023
  Receipt Date: 20071017
  Transmission Date: 20080405
  Serious: Yes (Life-Threatening, Other)
  Sender: FDA-Public Use
  Company Number: US-ELI_LILLY_AND_COMPANY-US200710004621

PATIENT
  Age: 26 Year
  Sex: Female

DRUGS (1)
  1. SYMBYAX [Suspect]
     Dosage: 1 D/F, UNK

REACTIONS (2)
  - CARDIOPULMONARY FAILURE [None]
  - LOSS OF CONSCIOUSNESS [None]
